FAERS Safety Report 7830204-7 (Version None)
Quarter: 2011Q4

REPORT INFORMATION
  Report Type: 
  Country: None (occurrence: None)
  Receive Date: 20111021
  Receipt Date: 20111014
  Transmission Date: 20120403
  Serious: Yes (Disabling)
  Sender: FDA-Public Use
  Company Number: PHHY2011JP52753

PATIENT
  Sex: Male
  Weight: 46 kg

DRUGS (11)
  1. EXJADE [Suspect]
     Dosage: 500 MG, DAILY
     Route: 048
     Dates: start: 20110304
  2. SITAGLIPTIN [Concomitant]
     Indication: TYPE 2 DIABETES MELLITUS
     Dosage: 50 MG, UNK
     Route: 048
     Dates: start: 20100826
  3. PRIMOBOLAN-DEPOT INJ [Concomitant]
     Indication: MYELODYSPLASTIC SYNDROME
     Dosage: 20 MG, UNK
     Route: 048
     Dates: start: 20100826
  4. STAYBLA [Concomitant]
     Indication: TYPE 2 DIABETES MELLITUS
     Dosage: 0.4 MG, UNK
     Route: 048
     Dates: start: 20100826
  5. EXJADE [Suspect]
     Indication: IRON OVERLOAD
     Dosage: 500 MG, DAILY
     Route: 048
     Dates: start: 20100826
  6. EXJADE [Suspect]
     Dosage: 1000 MG, DAILY
     Route: 048
     Dates: start: 20100831, end: 20101209
  7. EXJADE [Suspect]
     Dosage: 500 MG, DAILY
     Route: 048
     Dates: start: 20101210, end: 20110214
  8. BASEN [Concomitant]
     Indication: TYPE 2 DIABETES MELLITUS
     Dosage: 0.6 MG, UNK
     Route: 048
     Dates: start: 20100826
  9. ACTOS [Concomitant]
     Indication: TYPE 2 DIABETES MELLITUS
     Dosage: 30 MG, UNK
     Route: 048
     Dates: start: 20100826
  10. AMARYL [Concomitant]
     Indication: TYPE 2 DIABETES MELLITUS
     Dosage: 2 MG, UNK
     Route: 048
     Dates: start: 20100826
  11. PREDNISOLONE [Concomitant]
     Indication: MYELODYSPLASTIC SYNDROME
     Dosage: 5 MG, UNK
     Route: 048

REACTIONS (2)
  - CEREBRAL INFARCTION [None]
  - APHASIA [None]
